FAERS Safety Report 25422854 (Version 2)
Quarter: 2025Q2

REPORT INFORMATION
  Report Type: Spontaneous
  Country: JP (occurrence: JP)
  Receive Date: 20250611
  Receipt Date: 20250617
  Transmission Date: 20250717
  Serious: No
  Sender: PFIZER
  Company Number: JP-PFIZER INC-PV202500069129

PATIENT
  Age: 50 Year
  Sex: Female

DRUGS (23)
  1. METHYLPREDNISOLONE SODIUM SUCCINATE [Suspect]
     Active Substance: METHYLPREDNISOLONE SODIUM SUCCINATE
     Indication: Castleman^s disease
     Dosage: 1000 MG, 1X/DAY
     Route: 042
  2. METHYLPREDNISOLONE SODIUM SUCCINATE [Suspect]
     Active Substance: METHYLPREDNISOLONE SODIUM SUCCINATE
     Dosage: 500 MG, 1X/DAY
     Route: 042
  3. METHYLPREDNISOLONE SODIUM SUCCINATE [Suspect]
     Active Substance: METHYLPREDNISOLONE SODIUM SUCCINATE
     Dosage: 1000 MG, 1X/DAY
     Route: 042
  4. PREDNISOLONE [Suspect]
     Active Substance: PREDNISOLONE
     Indication: Castleman^s disease
     Dosage: 60 MG, 1X/DAY
     Route: 048
  5. PREDNISOLONE [Suspect]
     Active Substance: PREDNISOLONE
     Dosage: 25 MG, 1X/DAY
     Route: 048
  6. PREDNISOLONE [Suspect]
     Active Substance: PREDNISOLONE
     Route: 048
  7. PREDNISOLONE [Suspect]
     Active Substance: PREDNISOLONE
     Route: 048
  8. PREDNISOLONE [Suspect]
     Active Substance: PREDNISOLONE
     Dosage: 15 MG, 1X/DAY
     Route: 048
  9. PREDNISOLONE [Suspect]
     Active Substance: PREDNISOLONE
     Dosage: 20 MG, 1X/DAY
     Route: 048
  10. PREDNISOLONE [Suspect]
     Active Substance: PREDNISOLONE
     Dosage: 60 MG, 1X/DAY
     Route: 048
  11. PREDNISOLONE [Suspect]
     Active Substance: PREDNISOLONE
     Dosage: 7.5 MG, 1X/DAY
     Route: 048
  12. PREDNISOLONE [Suspect]
     Active Substance: PREDNISOLONE
     Dosage: 30 MG, 1X/DAY
     Route: 048
  13. PREDNISOLONE [Suspect]
     Active Substance: PREDNISOLONE
     Dosage: 5 MG, 1X/DAY
     Route: 048
  14. PREDNISOLONE [Suspect]
     Active Substance: PREDNISOLONE
     Dosage: 30 MG, 1X/DAY
     Route: 048
  15. RITUXIMAB [Suspect]
     Active Substance: RITUXIMAB
     Indication: Castleman^s disease
     Dosage: 375 MG/M2, WEEKLY; TOTAL OF 8 CYCLES
  16. RITUXIMAB [Suspect]
     Active Substance: RITUXIMAB
     Dosage: 375 MG/M2, WEEKLY; TOTAL OF 3 CYCLES
  17. ELTROMBOPAG [Concomitant]
     Active Substance: ELTROMBOPAG
     Indication: Ascites
     Route: 048
  18. ELTROMBOPAG [Concomitant]
     Active Substance: ELTROMBOPAG
     Indication: Abdominal pain
  19. ELTROMBOPAG [Concomitant]
     Active Substance: ELTROMBOPAG
     Indication: Thrombocytopenia
  20. FUROSEMIDE [Concomitant]
     Active Substance: FUROSEMIDE
     Indication: Ascites
     Dosage: 60 MG, 1X/DAY; ON THE 5TH AND 6TH ADMISSIONS
  21. SPIRONOLACTONE [Concomitant]
     Active Substance: SPIRONOLACTONE
     Indication: Ascites
     Dosage: 25 MG, 1X/DAY; ON THE 5TH AND 6TH ADMISSIONS
  22. TRICHLORMETHIAZIDE [Concomitant]
     Active Substance: TRICHLORMETHIAZIDE
     Indication: Ascites
     Dosage: 1 MG, 1X/DAY; ON THE 5TH AND 6TH ADMISSIONS
  23. TOLVAPTAN [Concomitant]
     Active Substance: TOLVAPTAN
     Indication: Ascites
     Dosage: 15 MG, 1X/DAY; ON THE 5TH AND 6TH ADMISSIONS

REACTIONS (2)
  - Drug ineffective for unapproved indication [Unknown]
  - Off label use [Unknown]
